FAERS Safety Report 9843178 (Version 1)
Quarter: 2014Q1

REPORT INFORMATION
  Report Type: Spontaneous
  Country: FR (occurrence: FR)
  Receive Date: 20140124
  Receipt Date: 20140124
  Transmission Date: 20141002
  Serious: Yes (Other)
  Sender: FDA-Public Use
  Company Number: FR-ACTAVIS-2013-24674

PATIENT
  Age: 55 Year
  Sex: 0
  Weight: 74 kg

DRUGS (2)
  1. PACLITAXEL ACTAVIS [Suspect]
     Indication: OVARIAN CANCER
     Dosage: 302.75 MG, UNK
     Route: 042
     Dates: start: 20131003, end: 20131003
  2. PACLITAXEL ACTAVIS [Suspect]
     Dosage: 302.75 MG, UNK
     Route: 042
     Dates: start: 20131003, end: 20131003

REACTIONS (3)
  - Skin reaction [Recovered/Resolved]
  - Chest discomfort [Recovered/Resolved]
  - Hyperhidrosis [Recovered/Resolved]
